FAERS Safety Report 20477600 (Version 2)
Quarter: 2022Q2

REPORT INFORMATION
  Report Type: Report from Study
  Country: DE (occurrence: DE)
  Receive Date: 20220216
  Receipt Date: 20220411
  Transmission Date: 20220721
  Serious: Yes (Hospitalization, Congenital Anomaly)
  Sender: FDA-Public Use
  Company Number: DE-002147023-NVSC2022DE028643

PATIENT
  Sex: Female

DRUGS (9)
  1. ERENUMAB [Suspect]
     Active Substance: ERENUMAB
     Indication: Foetal exposure during pregnancy
     Dosage: MATERNAL EXPOSURE PRIOR TO PREGNANCY 70 MG, EVERY 4 WEEKS
     Route: 064
  2. SUMATRIPTAN [Concomitant]
     Active Substance: SUMATRIPTAN
     Indication: Foetal exposure during pregnancy
     Dosage: UNK
     Route: 050
  3. MINETTE [LYNESTRENOL] [Concomitant]
     Indication: Foetal exposure during pregnancy
     Dosage: UNK
     Route: 050
  4. IBUPROFEN [Concomitant]
     Active Substance: IBUPROFEN
     Indication: Foetal exposure during pregnancy
     Dosage: UNK
     Route: 050
  5. FOLIC ACID [Concomitant]
     Active Substance: FOLIC ACID
     Indication: Foetal exposure during pregnancy
     Dosage: UNK
     Route: 050
  6. VERMEX [Concomitant]
     Indication: Foetal exposure during pregnancy
     Dosage: UNK
     Route: 050
  7. DICLOFENAC [Concomitant]
     Active Substance: DICLOFENAC
     Indication: Foetal exposure during pregnancy
     Dosage: UNK
     Route: 050
  8. DEXTROSE [Concomitant]
     Active Substance: DEXTROSE
     Indication: Foetal exposure during pregnancy
     Dosage: UNK
     Route: 050
  9. ACETAMINOPHEN [Concomitant]
     Active Substance: ACETAMINOPHEN
     Indication: Foetal exposure during pregnancy
     Dosage: UNK
     Route: 050

REACTIONS (4)
  - Atrial septal defect [Unknown]
  - Pulmonary valve stenosis [Unknown]
  - Gastroenteritis [Unknown]
  - Maternal exposure before pregnancy [Unknown]
